FAERS Safety Report 22032537 (Version 1)
Quarter: 2023Q1

REPORT INFORMATION
  Report Type: Spontaneous
  Country: FR (occurrence: FR)
  Receive Date: 20230224
  Receipt Date: 20230224
  Transmission Date: 20230417
  Serious: Yes (Other)
  Sender: FDA-Public Use
  Company Number: FR-AFSSAPS-RN2023000180

PATIENT
  Age: 79 Year
  Sex: Male
  Weight: 115 kg

DRUGS (11)
  1. MELATONIN [Suspect]
     Active Substance: MELATONIN
     Indication: Insomnia
     Dosage: 2 MILLIGRAM, AT BED TIME,( 2MG AT BEDTIME)
     Route: 048
     Dates: start: 202301
  2. OXAZEPAM [Suspect]
     Active Substance: OXAZEPAM
     Indication: Insomnia
     Dosage: 0.5 DOSAGE FORM, ONCE A DAY,(25 MG IN THE EVENING IF NEEDED)
     Route: 048
     Dates: start: 20230123, end: 20230206
  3. TEICOPLANIN [Suspect]
     Active Substance: TEICOPLANIN
     Indication: Endocarditis
     Dosage: 800 MILLIGRAM, EVERY MORNING
     Route: 058
     Dates: start: 20230127, end: 20230207
  4. KARDEGIC [Concomitant]
     Active Substance: ASPIRIN DL-LYSINE
     Indication: Product used for unknown indication
     Dosage: UNK
     Route: 065
  5. LERCANIDIPINE [Concomitant]
     Active Substance: LERCANIDIPINE
     Indication: Product used for unknown indication
     Dosage: UNK
     Route: 065
  6. MAGNE B6 [Concomitant]
     Active Substance: MAGNESIUM\PYRIDOXINE
     Indication: Product used for unknown indication
     Dosage: UNK,(32 IU IN THE MORNING)
     Route: 065
  7. NOVORAPID [Concomitant]
     Active Substance: INSULIN ASPART
     Indication: Type 2 diabetes mellitus
     Dosage: UNK,(20 IU IN THE MORNING, 12 IU IN THE AFTERNOON, 12 IU IN THE EVENING)
     Route: 058
     Dates: start: 202301
  8. PANTOPRAZOLE [Concomitant]
     Active Substance: PANTOPRAZOLE
     Indication: Ulcer
     Dosage: 40 MILLIGRAM, EVERY MORNING,(40MG IN THE MORNING)
     Route: 048
     Dates: start: 202301
  9. PERINDOPRIL [Concomitant]
     Active Substance: PERINDOPRIL
     Indication: Product used for unknown indication
     Dosage: UNK
     Route: 065
  10. TRESIBA [Concomitant]
     Active Substance: INSULIN DEGLUDEC
     Indication: Type 2 diabetes mellitus
     Dosage: 32 INTERNATIONAL UNIT
     Route: 058
     Dates: start: 202301
  11. CHOLECALCIFEROL [Concomitant]
     Active Substance: CHOLECALCIFEROL
     Indication: Blood magnesium decreased
     Dosage: UNK
     Route: 048
     Dates: start: 20230204, end: 20230204

REACTIONS (1)
  - Thrombocytopenia [Recovering/Resolving]

NARRATIVE: CASE EVENT DATE: 20230107
